FAERS Safety Report 19663378 (Version 1)
Quarter: 2021Q3

REPORT INFORMATION
  Report Type: Spontaneous
  Country: US (occurrence: US)
  Receive Date: 20210805
  Receipt Date: 20210805
  Transmission Date: 20211014
  Serious: No
  Sender: FDA-Public Use
  Company Number: US-SK LIFE SCIENCE, INC-SKPVG-2020-000088

PATIENT

DRUGS (10)
  1. TOPAMAX [Concomitant]
     Active Substance: TOPIRAMATE
     Indication: MIGRAINE
     Dosage: 25 MILLIGRAM, QD
     Route: 065
  2. VITAMIN D                          /00107901/ [Concomitant]
     Active Substance: ERGOCALCIFEROL
     Indication: PRODUCT USED FOR UNKNOWN INDICATION
     Route: 065
  3. XCOPRI [Suspect]
     Active Substance: CENOBAMATE
     Indication: EPILEPSY
  4. CLONAZEPAM. [Concomitant]
     Active Substance: CLONAZEPAM
     Indication: SEIZURE
     Dosage: 2 MILLIGRAM, DISSOLVABLE TABLET
     Route: 048
  5. TRILEPTAL [Concomitant]
     Active Substance: OXCARBAZEPINE
     Dosage: 750 MILLIGRAM, AT NIGHT
     Route: 065
  6. BRIVIACT [Concomitant]
     Active Substance: BRIVARACETAM
     Dosage: 75 MILLIGRAM, AT NIGHT
     Route: 065
  7. XCOPRI [Suspect]
     Active Substance: CENOBAMATE
     Indication: GENERALISED TONIC-CLONIC SEIZURE
     Dosage: 100 MILLIGRAM, QD, ONE PILL
     Route: 048
     Dates: start: 20200609
  8. BOTOX [Concomitant]
     Active Substance: ONABOTULINUMTOXINA
     Indication: PAIN MANAGEMENT
     Dosage: 131 INJECTIONS GIVEN TO HER BACK
     Route: 065
     Dates: start: 202007
  9. BRIVIACT [Concomitant]
     Active Substance: BRIVARACETAM
     Indication: SEIZURE
     Dosage: 50 MILLIGRAM, IN THE MORNING
     Route: 065
  10. TRILEPTAL [Concomitant]
     Active Substance: OXCARBAZEPINE
     Indication: SEIZURE
     Dosage: 300 MILLIGRAM, IN MORNING
     Route: 065

REACTIONS (8)
  - Blood sodium decreased [Unknown]
  - Seizure [Unknown]
  - Feeling abnormal [Unknown]
  - Seizure [Unknown]
  - Seizure [Unknown]
  - Seizure [Unknown]
  - Seizure [Unknown]
  - Choking sensation [Unknown]

NARRATIVE: CASE EVENT DATE: 20200609
